FAERS Safety Report 11923634 (Version 3)
Quarter: 2016Q1

REPORT INFORMATION
  Report Type: Spontaneous
  Country: JP (occurrence: JP)
  Receive Date: 20160118
  Receipt Date: 20160224
  Transmission Date: 20160526
  Serious: Yes (Other)
  Sender: FDA-Public Use
  Company Number: JP-ASTELLAS-2016JP000543AA

PATIENT
  Age: 68 Year
  Sex: Female

DRUGS (2)
  1. PROGRAF [Suspect]
     Active Substance: TACROLIMUS\TACROLIMUS ANHYDROUS
     Indication: POLYMYALGIA RHEUMATICA
     Dosage: UNK UNK, UNKNOWN FREQ.
     Route: 048
     Dates: start: 201501
  2. RINDERON                           /00008501/ [Concomitant]
     Active Substance: BETAMETHASONE
     Indication: POLYMYALGIA RHEUMATICA
     Dosage: UNK UNK, UNKNOWN FREQ.
     Route: 048
     Dates: start: 201411

REACTIONS (2)
  - Off label use [Unknown]
  - Porokeratosis [Recovered/Resolved]

NARRATIVE: CASE EVENT DATE: 2015
